FAERS Safety Report 5313732-8 (Version None)
Quarter: 2007Q2

REPORT INFORMATION
  Report Type: 
  Country: None (occurrence: None)
  Receive Date: 20070501
  Receipt Date: 20070424
  Transmission Date: 20071010
  Serious: Yes (Death)
  Sender: FDA-Public Use
  Company Number: KR-GILEAD-2007-0011456

PATIENT
  Age: 65 Year
  Sex: Female

DRUGS (2)
  1. ADEFOVIR DIPIVOXIL [Suspect]
     Indication: HEPATITIS B
     Route: 048
     Dates: start: 20060222
  2. LAMIVUDINE [Concomitant]
     Dates: start: 20060222, end: 20060226

REACTIONS (1)
  - HEPATIC FAILURE [None]
